FAERS Safety Report 9367331 (Version 2)
Quarter: 2013Q3

REPORT INFORMATION
  Report Type: Spontaneous
  Country: JP (occurrence: JP)
  Receive Date: 20130625
  Receipt Date: 20130710
  Transmission Date: 20140515
  Serious: Yes (Hospitalization)
  Sender: FDA-Public Use
  Company Number: JP-009507513-1306JPN010948

PATIENT
  Age: 69 Year
  Sex: Female

DRUGS (1)
  1. BONALON [Suspect]
     Dosage: UNK
     Route: 048
     Dates: start: 2003

REACTIONS (2)
  - Osteomyelitis [Recovered/Resolved]
  - Periodontitis [Recovered/Resolved]
